FAERS Safety Report 7641274-3 (Version None)
Quarter: 2011Q3

REPORT INFORMATION
  Report Type: 
  Country: None (occurrence: None)
  Receive Date: 20110728
  Receipt Date: 20110710
  Transmission Date: 20111222
  Serious: No
  Sender: FDA-Public Use
  Company Number: US-B.I. PHARMACEUTICALS,INC./RIDGEFIELD-2011-BP-17376BP

PATIENT
  Sex: Female

DRUGS (2)
  1. SPIRIVA [Suspect]
     Dosage: 18 MCG
     Route: 048
     Dates: start: 20110710, end: 20110710
  2. SPIRIVA [Suspect]
     Indication: ASTHMA
     Dosage: 18 MCG
     Dates: start: 20040101

REACTIONS (2)
  - DRUG INEFFECTIVE [None]
  - INCORRECT ROUTE OF DRUG ADMINISTRATION [None]
